FAERS Safety Report 18503671 (Version 2)
Quarter: 2020Q4

REPORT INFORMATION
  Report Type: Report from Study
  Country: FR (occurrence: FR)
  Receive Date: 20201113
  Receipt Date: 20201208
  Transmission Date: 20210114
  Serious: Yes (Death, Hospitalization, Other)
  Sender: FDA-Public Use
  Company Number: FR-MYLANLABS-2020M1094777

PATIENT

DRUGS (18)
  1. FLUCYTOSINE. [Suspect]
     Active Substance: FLUCYTOSINE
     Indication: SYSTEMIC CANDIDA
     Dosage: 2.5 GRAM, QD
     Dates: start: 20180706, end: 20180711
  2. AMPHOTERICIN B. [Suspect]
     Active Substance: AMPHOTERICIN B
     Indication: SYSTEMIC CANDIDA
     Dosage: 1400 MILLIGRAM, QD
     Dates: start: 20180706, end: 20180711
  3. CORDARONE [Suspect]
     Active Substance: AMIODARONE HYDROCHLORIDE
     Indication: ATRIAL FIBRILLATION
     Dosage: 200 MILLIGRAM, QD
     Route: 048
     Dates: start: 20180629, end: 20180710
  4. CASPOFUNGIN [Suspect]
     Active Substance: CASPOFUNGIN
     Indication: CANDIDA INFECTION
     Dosage: 50 MILLIGRAM, QD
     Dates: start: 20180703, end: 20180705
  5. ZAVICEFTA [Suspect]
     Active Substance: AVIBACTAM SODIUM\CEFTAZIDIME
     Indication: URINARY TRACT INFECTION
     Dosage: 6 GRAM, QD
     Dates: start: 20180705, end: 20180706
  6. CORDARONE [Suspect]
     Active Substance: AMIODARONE HYDROCHLORIDE
     Indication: PRODUCT USED FOR UNKNOWN INDICATION
     Dosage: 600 MILLIGRAM, QD
     Route: 042
     Dates: start: 20180624, end: 20180628
  7. ATRACURIUM [Suspect]
     Active Substance: ATRACURIUM
     Dosage: 100 MILLIGRAM, QD
     Route: 042
     Dates: start: 20180621, end: 20180621
  8. DEFITELIO [Suspect]
     Active Substance: DEFIBROTIDE SODIUM
     Indication: VENOOCCLUSIVE LIVER DISEASE
     Dosage: 25 MG/KG/DAY
     Route: 042
     Dates: start: 20180615, end: 20180704
  9. FLUDARABINE [Concomitant]
     Active Substance: FLUDARABINE PHOSPHATE
     Indication: BONE MARROW CONDITIONING REGIMEN
     Dosage: 150 MILLIGRAM/SQ. METER
  10. ATRACURIUM [Suspect]
     Active Substance: ATRACURIUM
     Indication: RESPIRATORY FAILURE
     Dosage: UNK
  11. THIOTEPA. [Concomitant]
     Active Substance: THIOTEPA
     Indication: BONE MARROW CONDITIONING REGIMEN
     Dosage: 5 MILLIGRAM/KILOGRAM
  12. NOREPINEPHRINE. [Concomitant]
     Active Substance: NOREPINEPHRINE
     Indication: HYPOTENSION
     Dosage: 2.5 ?G/KG/MIN
     Route: 042
     Dates: start: 20180621, end: 20180623
  13. DOBUTAMINE [Concomitant]
     Active Substance: DOBUTAMINE HYDROCHLORIDE
     Indication: HYPOKINESIA
     Dosage: 2 ?G/KG/MIN
     Route: 042
     Dates: start: 20180621, end: 20180623
  14. TRIFLUCAN [Suspect]
     Active Substance: FLUCONAZOLE
     Indication: CANDIDA INFECTION
     Dosage: 400 MILLIGRAM, QD
     Dates: start: 20180623, end: 20180629
  15. TIENAM [Suspect]
     Active Substance: CILASTATIN SODIUM\IMIPENEM
     Indication: URINARY TRACT INFECTION
     Dosage: 4 GRAM, QD
     Route: 048
     Dates: start: 20180704, end: 20180706
  16. ETOPOSIDE. [Concomitant]
     Active Substance: ETOPOSIDE
     Indication: BONE MARROW CONDITIONING REGIMEN
     Dosage: 400 MILLIGRAM/SQ. METER
  17. MEROPENEM. [Suspect]
     Active Substance: MEROPENEM
     Indication: CANDIDA INFECTION
     Dosage: 3 GRAM, QD
     Dates: start: 20180611, end: 20180625
  18. CANCIDAS [Suspect]
     Active Substance: CASPOFUNGIN ACETATE
     Indication: CANDIDA INFECTION
     Dosage: 70 MILLIGRAM, QD
     Dates: start: 20180614, end: 20180622

REACTIONS (11)
  - Systemic candida [Unknown]
  - Immunodeficiency [Unknown]
  - Encephalopathy [Fatal]
  - Cystitis haemorrhagic [Unknown]
  - Multiple organ dysfunction syndrome [Fatal]
  - Clostridium difficile colitis [Fatal]
  - Acute pulmonary oedema [Fatal]
  - Atrial fibrillation [Unknown]
  - Anaphylactic shock [Unknown]
  - Pneumonia [Fatal]
  - Splenic candidiasis [Fatal]

NARRATIVE: CASE EVENT DATE: 20180621
